FAERS Safety Report 12093874 (Version 1)
Quarter: 2016Q1

REPORT INFORMATION
  Report Type: Report from Study
  Country: US (occurrence: US)
  Receive Date: 20160219
  Receipt Date: 20160219
  Transmission Date: 20160526
  Serious: Yes (Death, Life-Threatening, Hospitalization, Other)
  Sender: FDA-Public Use
  Company Number: US-ASTELLAS-2008002514

PATIENT
  Age: 59 Year
  Sex: Female
  Weight: 50 kg

DRUGS (2)
  1. BEVACIZUMAB [Suspect]
     Active Substance: BEVACIZUMAB
     Indication: CHOLANGIOCARCINOMA
     Dosage: 5 MG/KG, CYCLIC DAYS 1 AND 15
     Route: 042
     Dates: start: 20080225
  2. ERLOTINIB [Suspect]
     Active Substance: ERLOTINIB
     Indication: CHOLANGIOCARCINOMA
     Route: 048
     Dates: start: 20080225, end: 20080408

REACTIONS (9)
  - Biliary tract disorder [Unknown]
  - Embolism [Recovered/Resolved]
  - Abdominal pain [Unknown]
  - Weight decreased [Recovered/Resolved]
  - Blood alkaline phosphatase increased [Unknown]
  - Blood bilirubin increased [Unknown]
  - Gamma-glutamyltransferase increased [Unknown]
  - Alanine aminotransferase increased [Unknown]
  - Death [Fatal]

NARRATIVE: CASE EVENT DATE: 20080403
